FAERS Safety Report 5363535-3 (Version None)
Quarter: 2007Q2

REPORT INFORMATION
  Report Type: 
  Country: None (occurrence: None)
  Receive Date: 20070618
  Receipt Date: 20070608
  Transmission Date: 20071010
  Serious: Yes (Hospitalization)
  Sender: FDA-Public Use
  Company Number: 6034371

PATIENT
  Age: 78 Year
  Sex: Female

DRUGS (5)
  1. CONCOR PLUS (12, 5 MG) HYDROCHLOROTHIAZIDE, BISOPROLOL FUMARATE) [Suspect]
     Indication: ESSENTIAL HYPERTENSION
     Dosage: 12, 5000 MG (12, 5 MG, 1 IN 1 D), ORAL
     Route: 048
     Dates: end: 20070125
  2. TORASEM MEPHA 5MG (5MG) (TORASEMIDE) [Suspect]
     Indication: GENERALISED OEDEMA
     Dosage: 5,00 MG (5 MG, 1 IN 1 D), ORAL
     Route: 048
     Dates: start: 20070115, end: 20070125
  3. PRETERAX (0, 625 MG) (INDAPAMIDE, PERINDOPRIL ERBUMINE [Suspect]
     Indication: ESSENTIAL HYPERTENSION
     Dosage: 0,6250 MG (0, 625 MG, 1 IN 1 D), ORAL
     Route: 048
     Dates: end: 20070125
  4. ESCITALOPRAM [Suspect]
     Indication: DRUG USE FOR UNKNOWN INDICATION
     Dosage: ORAL
     Route: 048
     Dates: start: 20070121, end: 20070123
  5. METAMUCIL (PLANTIAGO OVATA) [Concomitant]

REACTIONS (13)
  - ARRHYTHMIA [None]
  - ASTHENIA [None]
  - DILATATION ATRIAL [None]
  - GENERAL PHYSICAL HEALTH DETERIORATION [None]
  - HYPERVOLAEMIA [None]
  - HYPOCHLORAEMIA [None]
  - HYPOKALAEMIA [None]
  - HYPONATRAEMIA [None]
  - HYPOVOLAEMIA [None]
  - MITRAL VALVE INCOMPETENCE [None]
  - MYOCARDIAL STRAIN [None]
  - NAUSEA [None]
  - ORTHOSTATIC INTOLERANCE [None]
